FAERS Safety Report 8305960 (Version 4)
Quarter: 2015Q4

REPORT INFORMATION
  Report Type: Report from Study
  Country: BR (occurrence: BR)
  Receive Date: 20111221
  Receipt Date: 20151214
  Transmission Date: 20160305
  Serious: Yes (Other)
  Sender: FDA-Public Use
  Company Number: BR-ROCHE-760390

PATIENT
  Age: 59 Year
  Sex: Female
  Weight: 65 kg

DRUGS (8)
  1. PREDNISONE. [Concomitant]
     Active Substance: PREDNISONE
  2. MABTHERA [Suspect]
     Active Substance: RITUXIMAB
     Route: 042
  3. VERAPAMIL [Concomitant]
     Active Substance: VERAPAMIL HYDROCHLORIDE
  4. METHOTREXATE [Concomitant]
     Active Substance: METHOTREXATE
  5. METICORTEN [Concomitant]
     Active Substance: PREDNISONE
  6. MABTHERA [Suspect]
     Active Substance: RITUXIMAB
     Indication: RHEUMATOID ARTHRITIS
     Dosage: DATE OF MOST RECENT RITUXIMAB INFUSION: 04/JUN/2014?DATE OF MOST RECENT RITUXIMAB INFUSION: 07/DEC/2
     Route: 042
     Dates: start: 20090901, end: 20091009
  7. OMEPRAZOLE. [Concomitant]
     Active Substance: OMEPRAZOLE
  8. ALENDRONATE [Concomitant]
     Active Substance: ALENDRONATE SODIUM

REACTIONS (10)
  - Insomnia [Not Recovered/Not Resolved]
  - Urinary tract infection [Not Recovered/Not Resolved]
  - Paraesthesia [Unknown]
  - Diabetes mellitus [Not Recovered/Not Resolved]
  - Tremor [Not Recovered/Not Resolved]
  - Labyrinthitis [Unknown]
  - Labyrinthitis [Recovered/Resolved]
  - Formication [Not Recovered/Not Resolved]
  - Weight increased [Not Recovered/Not Resolved]
  - Conjunctivitis [Recovering/Resolving]

NARRATIVE: CASE EVENT DATE: 200909
